FAERS Safety Report 17541129 (Version 3)
Quarter: 2020Q3

REPORT INFORMATION
  Report Type: Report from Study
  Country: None (occurrence: US)
  Receive Date: 20200313
  Receipt Date: 20200701
  Transmission Date: 20201102
  Serious: Yes (Hospitalization)
  Sender: FDA-Public Use
  Company Number: US-ABBVIE-20P-163-3312481-00

PATIENT
  Age: 68 Year
  Sex: Female

DRUGS (3)
  1. IMBRUVICA [Suspect]
     Active Substance: IBRUTINIB
     Route: 048
     Dates: start: 20170427
  2. IMBRUVICA [Suspect]
     Active Substance: IBRUTINIB
     Route: 048
     Dates: start: 20170524
  3. IMBRUVICA [Suspect]
     Active Substance: IBRUTINIB
     Indication: CHRONIC LYMPHOCYTIC LEUKAEMIA
     Route: 048
     Dates: start: 20170504

REACTIONS (5)
  - Arthralgia [Not Recovered/Not Resolved]
  - Blood potassium decreased [Unknown]
  - Peripheral swelling [Not Recovered/Not Resolved]
  - Diarrhoea [Recovered/Resolved]
  - Sepsis [Unknown]

NARRATIVE: CASE EVENT DATE: 202003
